FAERS Safety Report 6685155-0 (Version None)
Quarter: 2010Q2

REPORT INFORMATION
  Report Type: 
  Country: None (occurrence: None)
  Receive Date: 20100416
  Receipt Date: 20100406
  Transmission Date: 20101027
  Serious: Yes (Other)
  Sender: FDA-Public Use
  Company Number: JP-PFIZER INC-2010044518

PATIENT
  Age: 41 Year
  Sex: Female

DRUGS (8)
  1. SOLANAX [Suspect]
     Dosage: 1.5 MG, 3X/DAY
     Dates: start: 20100116
  2. ZOLOFT [Suspect]
     Indication: DEPRESSION
     Dosage: 25 MG, 1X/DAY
     Route: 048
     Dates: start: 20100306, end: 20100312
  3. ZOLOFT [Suspect]
     Dosage: 50 MG, 1X/DAY
     Route: 048
     Dates: start: 20100313, end: 20100319
  4. DOGMATYL [Suspect]
     Dosage: UNK
     Route: 048
     Dates: start: 20090401
  5. DOGMATYL [Suspect]
     Dosage: 50 MG, 3X/DAY
     Route: 048
     Dates: start: 20100116
  6. DOGMATYL [Suspect]
     Dosage: 50 MG, 2X/DAY
     Route: 048
  7. DOGMATYL [Suspect]
     Dosage: 50 MG, 1X/DAY
     Route: 048
  8. MEILAX [Suspect]
     Dosage: UNK
     Dates: start: 20090401

REACTIONS (7)
  - DEPRESSION [None]
  - ECZEMA [None]
  - HYPERPROLACTINAEMIA [None]
  - MENSTRUATION IRREGULAR [None]
  - PHOTOSENSITIVITY REACTION [None]
  - SWELLING FACE [None]
  - WEIGHT INCREASED [None]
